FAERS Safety Report 17872103 (Version 2)
Quarter: 2020Q2

REPORT INFORMATION
  Report Type: Spontaneous
  Country: US (occurrence: US)
  Receive Date: 20200608
  Receipt Date: 20200626
  Transmission Date: 20200714
  Serious: No
  Sender: FDA-Public Use
  Company Number: US-PFIZER INC-2020216780

PATIENT
  Age: 14 Year
  Sex: Male

DRUGS (2)
  1. GENOTROPIN [Suspect]
     Active Substance: SOMATROPIN
     Indication: TURNER^S SYNDROME
     Dosage: 0.8 MG
     Dates: start: 2014
  2. GENOTROPIN [Suspect]
     Active Substance: SOMATROPIN
     Indication: GROWTH HORMONE DEFICIENCY
     Dosage: 0.8 MG, DAILY (0.8MG; ONE INJECTION EVERY DAY) (GENOTROPIN 12MG CARTRIDGE, 0.8MG 7 DAYS/WK)
     Dates: start: 20081020

REACTIONS (4)
  - Device issue [Unknown]
  - Device breakage [Unknown]
  - Product dose omission [Unknown]
  - Device information output issue [Unknown]
